FAERS Safety Report 5127275-8 (Version None)
Quarter: 2006Q4

REPORT INFORMATION
  Report Type: 
  Country: None (occurrence: None)
  Receive Date: 20061010
  Receipt Date: 20060927
  Transmission Date: 20070319
  Serious: Yes (Other)
  Sender: FDA-Public Use
  Company Number: EM2006-0540

PATIENT
  Age: 61 Year
  Sex: Male

DRUGS (1)
  1. PROLEUKIN [Suspect]
     Indication: RENAL CELL CARCINOMA STAGE UNSPECIFIED
     Dosage: 10MIU/M2 OD ON DAYS 3-5, SUBCUTAN.
     Route: 058

REACTIONS (1)
  - PSYCHOTIC DISORDER DUE TO A GENERAL MEDICAL CONDITION [None]
